FAERS Safety Report 7069682-2 (Version None)
Quarter: 2010Q4

REPORT INFORMATION
  Report Type: 
  Country: None (occurrence: None)
  Receive Date: 20101028
  Receipt Date: 20100512
  Transmission Date: 20110411
  Serious: No
  Sender: FDA-Public Use
  Company Number: US-WYE-H15249910

PATIENT
  Sex: Female
  Weight: 69.01 kg

DRUGS (1)
  1. PANTOPRAZOLE [Suspect]
     Indication: DYSPEPSIA
     Dates: start: 20100101, end: 20100101

REACTIONS (2)
  - ABDOMINAL PAIN UPPER [None]
  - PRODUCT SUBSTITUTION ISSUE [None]
